FAERS Safety Report 19308599 (Version 1)
Quarter: 2021Q2

REPORT INFORMATION
  Report Type: Report from Study
  Country: US (occurrence: US)
  Receive Date: 20210526
  Receipt Date: 20210526
  Transmission Date: 20210717
  Serious: Yes (Other)
  Sender: FDA-Public Use
  Company Number: US-ASTRAZENECA-2021A459952

PATIENT
  Sex: Female
  Weight: 52.2 kg

DRUGS (10)
  1. LORAZEPAM. [Concomitant]
     Active Substance: LORAZEPAM
  2. VITAMIN C [Concomitant]
     Active Substance: ASCORBIC ACID
  3. VITAMIN E 1 [Concomitant]
  4. MULTIVITAMIN [Concomitant]
     Active Substance: VITAMINS
  5. ALLOPURINOL. [Concomitant]
     Active Substance: ALLOPURINOL
  6. CALCIUM [Concomitant]
     Active Substance: CALCIUM
  7. CALQUENCE [Suspect]
     Active Substance: ACALABRUTINIB
     Indication: CHRONIC LYMPHOCYTIC LEUKAEMIA
     Route: 048
     Dates: start: 20200729
  8. BIOTIN [Concomitant]
     Active Substance: BIOTIN
  9. COD LIVER OIL [Concomitant]
     Active Substance: COD LIVER OIL
  10. TYLENOL [Concomitant]
     Active Substance: ACETAMINOPHEN

REACTIONS (2)
  - Pneumonitis [Unknown]
  - Anaemia [Unknown]
